FAERS Safety Report 24625859 (Version 1)
Quarter: 2024Q4

REPORT INFORMATION
  Report Type: Spontaneous
  Country: US (occurrence: US)
  Receive Date: 20241115
  Receipt Date: 20241115
  Transmission Date: 20250115
  Serious: No
  Sender: ANI
  Company Number: US-ANIPHARMA-2024-US-054964

PATIENT
  Sex: Male

DRUGS (10)
  1. CORTICOTROPIN [Suspect]
     Active Substance: CORTICOTROPIN
     Indication: Dermatomyositis
     Dosage: INJECT 80 UNITS (1ML) INTRAMUSCULARLY TWO TIMES PER WEEK
     Route: 030
  2. FERROUS SULFATE [Concomitant]
     Active Substance: FERROUS SULFATE
  3. FOLIC ACID [Concomitant]
     Active Substance: FOLIC ACID
  4. OXYCODONE HYDROCHLORIDE [Concomitant]
     Active Substance: OXYCODONE HYDROCHLORIDE
  5. TACROLIMUS [Concomitant]
     Active Substance: TACROLIMUS
  6. ACETAMINOPHEN [Concomitant]
     Active Substance: ACETAMINOPHEN
  7. BACLOFEN [Concomitant]
     Active Substance: BACLOFEN
  8. ALBUTEROL SULFATE\IPRATROPIUM BROMIDE [Concomitant]
     Active Substance: ALBUTEROL SULFATE\IPRATROPIUM BROMIDE
  9. GUAIFENESIN [Concomitant]
     Active Substance: GUAIFENESIN
  10. DOCUSATE SODIUM [Concomitant]
     Active Substance: DOCUSATE SODIUM

REACTIONS (3)
  - Malaise [Recovered/Resolved]
  - Diarrhoea [Recovered/Resolved]
  - Faeces discoloured [Recovered/Resolved]
